FAERS Safety Report 24444056 (Version 2)
Quarter: 2024Q4

REPORT INFORMATION
  Report Type: Report from Study
  Country: CA (occurrence: CA)
  Receive Date: 20241016
  Receipt Date: 20241017
  Transmission Date: 20250114
  Serious: No
  Sender: ROCHE
  Company Number: CA-ROCHE-2501414

PATIENT
  Age: 74 Year
  Sex: Female
  Weight: 65.8 kg

DRUGS (19)
  1. RITUXAN [Suspect]
     Active Substance: RITUXIMAB
     Indication: Rheumatoid arthritis
     Dosage: DAY 1; 15 AND RETREATMENTS? FREQUENCY TEXT:DAY 1; 15
     Route: 042
     Dates: start: 20120704, end: 20170602
  2. RITUXAN [Suspect]
     Active Substance: RITUXIMAB
     Dosage: DAY 1, DAY 15
     Route: 042
     Dates: start: 20191204, end: 20200812
  3. RITUXAN [Suspect]
     Active Substance: RITUXIMAB
     Dosage: FREQUENCY TEXT:DAY 1, DAY 15
     Route: 042
     Dates: start: 20210224, end: 20220119
  4. RITUXAN [Suspect]
     Active Substance: RITUXIMAB
     Dosage: SINGLE INFUSION
     Route: 042
     Dates: start: 20220201, end: 20220201
  5. RITUXAN [Suspect]
     Active Substance: RITUXIMAB
     Dosage: DAY 1, DAY 15? FREQUENCY TEXT:DAY 1, DAY 15
     Route: 042
     Dates: start: 20201110
  6. RITUXAN [Suspect]
     Active Substance: RITUXIMAB
     Route: 042
  7. RITUXAN [Suspect]
     Active Substance: RITUXIMAB
     Route: 042
  8. RITUXAN [Suspect]
     Active Substance: RITUXIMAB
     Route: 042
  9. RITUXAN [Suspect]
     Active Substance: RITUXIMAB
     Route: 042
  10. RITUXAN [Suspect]
     Active Substance: RITUXIMAB
     Route: 042
  11. ACETAMINOPHEN [Concomitant]
     Active Substance: ACETAMINOPHEN
     Indication: Premedication
     Route: 048
     Dates: start: 20140304
  12. BENADRYL [Concomitant]
     Active Substance: DIPHENHYDRAMINE HYDROCHLORIDE
     Indication: Premedication
     Route: 048
     Dates: start: 20140304, end: 20170602
  13. BENADRYL [Concomitant]
     Active Substance: DIPHENHYDRAMINE HYDROCHLORIDE
     Route: 048
     Dates: start: 20191204
  14. CALCIUM [Concomitant]
     Active Substance: CALCIUM
     Indication: Product used for unknown indication
  15. PROLIA [Concomitant]
     Active Substance: DENOSUMAB
     Route: 065
  16. CRESTOR [Concomitant]
     Active Substance: ROSUVASTATIN CALCIUM
     Indication: Product used for unknown indication
  17. DEXILANT [Concomitant]
     Active Substance: DEXLANSOPRAZOLE
     Indication: Abdominal pain upper
  18. IMURAN [Concomitant]
     Active Substance: AZATHIOPRINE
     Indication: Rheumatoid arthritis
  19. METHYLPREDNISOLONE [Concomitant]
     Active Substance: METHYLPREDNISOLONE
     Indication: Premedication
     Route: 042
     Dates: start: 20140304

REACTIONS (8)
  - Blood pressure systolic abnormal [Unknown]
  - Oxygen saturation decreased [Unknown]
  - Off label use [Unknown]
  - Blood pressure diastolic abnormal [Unknown]
  - Blood pressure increased [Unknown]
  - Blood pressure systolic increased [Unknown]
  - Blood pressure fluctuation [Unknown]
  - Rhinorrhoea [Unknown]

NARRATIVE: CASE EVENT DATE: 20191204
